FAERS Safety Report 17494395 (Version 4)
Quarter: 2023Q2

REPORT INFORMATION
  Report Type: Report from Study
  Country: US (occurrence: US)
  Receive Date: 20200304
  Receipt Date: 20230504
  Transmission Date: 20230722
  Serious: Yes (Hospitalization)
  Sender: FDA-Public Use
  Company Number: US-KYOWAKIRIN-2020BKK003063

PATIENT

DRUGS (4)
  1. CRYSVITA [Suspect]
     Active Substance: BUROSUMAB-TWZA
     Indication: Product used for unknown indication
     Dosage: 20MG (2 INJECTIONS)
     Route: 058
     Dates: start: 20190719
  2. CRYSVITA [Suspect]
     Active Substance: BUROSUMAB-TWZA
     Indication: Hereditary hypophosphataemic rickets
     Dosage: 40 MG (2 INJECTIONS)
     Route: 058
     Dates: start: 20190719
  3. CRYSVITA [Suspect]
     Active Substance: BUROSUMAB-TWZA
     Dosage: 40 MG, 1X/2 WEEKS
     Route: 058
     Dates: start: 20190708
  4. CRYSVITA [Suspect]
     Active Substance: BUROSUMAB-TWZA
     Dosage: 40 MG, 1X/2 WEEKS
     Route: 058
     Dates: start: 20190712

REACTIONS (5)
  - Appendicectomy [Unknown]
  - Influenza [Not Recovered/Not Resolved]
  - COVID-19 [Unknown]
  - Blood phosphorus decreased [Unknown]
  - Back pain [Unknown]

NARRATIVE: CASE EVENT DATE: 20230202
